FAERS Safety Report 6877485-4 (Version None)
Quarter: 2010Q3

REPORT INFORMATION
  Report Type: 
  Country: None (occurrence: None)
  Receive Date: 20100727
  Receipt Date: 20091028
  Transmission Date: 20110219
  Serious: No
  Sender: FDA-Public Use
  Company Number: US-ABBOTT-09P-163-0608404-00

PATIENT
  Sex: Female
  Weight: 89.892 kg

DRUGS (4)
  1. SYNTHROID [Suspect]
     Indication: AUTOIMMUNE THYROIDITIS
     Dosage: STARTED ON NAME BRAND
     Dates: start: 20090801, end: 20091030
  2. SYNTHROID [Suspect]
     Dosage: CUT 125MCG IN HALF
     Dates: start: 20091030
  3. MULTI-VITAMINS [Concomitant]
     Indication: VITAMIN SUPPLEMENTATION
     Dosage: UNKNOWN
  4. CALCIUM [Concomitant]
     Indication: MINERAL SUPPLEMENTATION
     Dosage: UNKNOWN

REACTIONS (4)
  - ABDOMINAL DISTENSION [None]
  - THYROXINE INCREASED [None]
  - TRI-IODOTHYRONINE INCREASED [None]
  - WEIGHT LOSS POOR [None]
